FAERS Safety Report 13006641 (Version 1)
Quarter: 2016Q4

REPORT INFORMATION
  Report Type: Report from Study
  Country: US (occurrence: US)
  Receive Date: 20161207
  Receipt Date: 20161207
  Transmission Date: 20170207
  Serious: Yes (Other)
  Sender: FDA-Public Use
  Company Number: US-BAYER-2016-229313

PATIENT
  Age: 43 Year
  Sex: Male
  Weight: 83.9 kg

DRUGS (1)
  1. STIVARGA [Suspect]
     Active Substance: REGORAFENIB
     Indication: COLORECTAL CANCER
     Dosage: 120 MG DAILY FOR 21 DAYS
     Dates: start: 201607, end: 201610

REACTIONS (2)
  - Skin lesion [Recovering/Resolving]
  - Abasia [Recovering/Resolving]
